FAERS Safety Report 4417765-5 (Version None)
Quarter: 2004Q2

REPORT INFORMATION
  Report Type: 
  Country: None (occurrence: None)
  Receive Date: 20040621
  Receipt Date: 20040305
  Transmission Date: 20050107
  Serious: No
  Sender: FDA-Public Use
  Company Number: PHEH2004US02776

PATIENT
  Sex: Male

DRUGS (1)
  1. ZOMETA [Suspect]
     Dosage: INTRAVENOUS
     Route: 042

REACTIONS (3)
  - BONE DISORDER [None]
  - GINGIVAL RECESSION [None]
  - GLOSSODYNIA [None]
